FAERS Safety Report 26188652 (Version 1)
Quarter: 2025Q4

REPORT INFORMATION
  Report Type: Spontaneous
  Country: RU (occurrence: RU)
  Receive Date: 20251222
  Receipt Date: 20251222
  Transmission Date: 20260118
  Serious: Yes (Other)
  Sender: SERVIER
  Company Number: RU-SERVIER-S25018244

PATIENT

DRUGS (2)
  1. ONCASPAR [Suspect]
     Active Substance: PEGASPARGASE
     Indication: Acute lymphocytic leukaemia
     Dosage: 1380 IU, UNK
     Route: 042
     Dates: start: 20250820, end: 20250820
  2. ONCASPAR [Suspect]
     Active Substance: PEGASPARGASE
     Dosage: 1380 IU, UNK
     Route: 042
     Dates: start: 20251015, end: 20251015

REACTIONS (2)
  - Subclavian vein thrombosis [Recovered/Resolved]
  - Jugular vein thrombosis [Recovered/Resolved]

NARRATIVE: CASE EVENT DATE: 20251020
